FAERS Safety Report 13325909 (Version 2)
Quarter: 2017Q4

REPORT INFORMATION
  Report Type: Report from Study
  Country: None (occurrence: US)
  Receive Date: 20170310
  Receipt Date: 20171010
  Transmission Date: 20180320
  Serious: Yes (Other)
  Sender: FDA-Public Use
  Company Number: US-ABBVIE-17K-163-1867854-00

PATIENT
  Age: 34 Year
  Sex: Female
  Weight: 167.98 kg

DRUGS (4)
  1. HUMIRA [Suspect]
     Active Substance: ADALIMUMAB
     Route: 058
     Dates: start: 20170227
  2. IBUPROFEN. [Concomitant]
     Active Substance: IBUPROFEN
     Indication: PRODUCT USED FOR UNKNOWN INDICATION
  3. HUMIRA [Suspect]
     Active Substance: ADALIMUMAB
     Indication: RHEUMATOID ARTHRITIS
     Route: 058
     Dates: start: 201603, end: 20170130
  4. METHOTREXATE. [Suspect]
     Active Substance: METHOTREXATE
     Indication: RHEUMATOID ARTHRITIS
     Route: 065
     Dates: start: 201701, end: 2017

REACTIONS (11)
  - Sinusitis [Not Recovered/Not Resolved]
  - Feeling hot [Recovered/Resolved]
  - Upper respiratory tract infection [Recovered/Resolved]
  - Loss of consciousness [Recovered/Resolved]
  - Influenza [Recovered/Resolved]
  - Dehydration [Recovered/Resolved]
  - Dizziness [Not Recovered/Not Resolved]
  - Myalgia [Recovered/Resolved]
  - Upper respiratory tract infection [Unknown]
  - Drug interaction [Unknown]
  - Dizziness [Recovered/Resolved]

NARRATIVE: CASE EVENT DATE: 201603
